FAERS Safety Report 11851901 (Version 4)
Quarter: 2019Q4

REPORT INFORMATION
  Report Type: Spontaneous
  Country: US (occurrence: US)
  Receive Date: 20151218
  Receipt Date: 20191211
  Transmission Date: 20200122
  Serious: No
  Sender: FDA-Public Use
  Company Number: US-009507513-1512USA009221

PATIENT
  Age: 10 Week
  Sex: Male

DRUGS (3)
  1. TIMOLOL MALEATE. [Suspect]
     Active Substance: TIMOLOL MALEATE
     Dosage: STRENGTH 0.25 %, TWICE A DAY
     Route: 047
  2. TRUSOPT [Suspect]
     Active Substance: DORZOLAMIDE HYDROCHLORIDE
     Indication: GLAUCOMA
     Dosage: TWICE A DAY
     Route: 047
  3. TIMOLOL MALEATE. [Suspect]
     Active Substance: TIMOLOL MALEATE
     Indication: GLAUCOMA
     Dosage: STRENGTH 0.1 %, IN LEFT EYE
     Route: 047

REACTIONS (2)
  - Product administered to patient of inappropriate age [Unknown]
  - Drug ineffective [Unknown]
